FAERS Safety Report 8989887 (Version 1)
Quarter: 2012Q4

REPORT INFORMATION
  Report Type: 
  Country: US (occurrence: US)
  Receive Date: 20121228
  Receipt Date: 20121228
  Transmission Date: 20130627
  Serious: Yes (Hospitalization)
  Sender: FDA-Public Use
  Company Number: US-GLAXOSMITHKLINE-A1006579A

PATIENT
  Age: 73 Year
  Sex: Male
  Weight: 75 kg

DRUGS (6)
  1. VOTRIENT [Suspect]
     Indication: PRODUCT USED FOR UNKNOWN INDICATION
     Dosage: 800MG In the morning
     Route: 048
  2. RAMIPRIL [Concomitant]
     Route: 048
  3. LIPITOR [Concomitant]
     Route: 048
  4. AFINITOR [Concomitant]
     Route: 048
  5. CARVEDILOL [Concomitant]
     Route: 048
  6. BUFFERED ASPIRIN [Concomitant]
     Route: 048

REACTIONS (2)
  - Pericardial effusion [Unknown]
  - Dyspnoea [Unknown]
